FAERS Safety Report 7615686-8 (Version None)
Quarter: 2011Q3

REPORT INFORMATION
  Report Type: 
  Country: None (occurrence: None)
  Receive Date: 20110715
  Receipt Date: 20110715
  Transmission Date: 20111222
  Serious: Yes (Other)
  Sender: FDA-Public Use
  Company Number: None

PATIENT
  Age: 51 Year
  Sex: Male
  Weight: 99 kg

DRUGS (2)
  1. AMOXICILLIN AND CLAVULANATE POTASSIUM [Suspect]
     Indication: EAR INFECTION
     Dosage: 1 TAB TID PO
     Route: 048
     Dates: start: 20110321, end: 20110327
  2. AMOXICILLIN AND CLAVULANATE POTASSIUM [Suspect]
     Indication: VASCULAR OPERATION
     Dosage: 1 TAB TID PO
     Route: 048
     Dates: start: 20110321, end: 20110327

REACTIONS (11)
  - LIVER INJURY [None]
  - URTICARIA [None]
  - FATIGUE [None]
  - DRUG INEFFECTIVE [None]
  - NAUSEA [None]
  - PRURITUS [None]
  - DIARRHOEA [None]
  - SKIN BURNING SENSATION [None]
  - WEIGHT DECREASED [None]
  - FEELING HOT [None]
  - JAUNDICE CHOLESTATIC [None]
